FAERS Safety Report 5803679-2 (Version None)
Quarter: 2008Q3

REPORT INFORMATION
  Report Type: 
  Country: None (occurrence: None)
  Receive Date: 20080708
  Receipt Date: 20070814
  Transmission Date: 20090109
  Serious: No
  Sender: FDA-Public Use
  Company Number: US-AMGEN-KDL238880

PATIENT
  Sex: Female

DRUGS (2)
  1. KINERET [Suspect]
     Indication: PSORIATIC ARTHROPATHY
     Route: 058
     Dates: start: 20020101
  2. KINERET [Suspect]
     Indication: PSORIASIS

REACTIONS (3)
  - INJECTION SITE RASH [None]
  - PSORIASIS [None]
  - PSORIATIC ARTHROPATHY [None]
